FAERS Safety Report 7164042-8 (Version None)
Quarter: 2010Q4

REPORT INFORMATION
  Report Type: 
  Country: None (occurrence: None)
  Receive Date: 20101215
  Receipt Date: 20101209
  Transmission Date: 20110411
  Serious: Yes (Other)
  Sender: FDA-Public Use
  Company Number: B0688580A

PATIENT
  Sex: Male

DRUGS (3)
  1. DERMOVATE SCALP APPLICATION [Suspect]
     Indication: PRODUCT USED FOR UNKNOWN INDICATION
     Route: 061
  2. MYSER [Concomitant]
     Route: 061
  3. QVAR 40 [Concomitant]
     Indication: ASTHMA
     Route: 055

REACTIONS (1)
  - ADRENAL INSUFFICIENCY [None]
